FAERS Safety Report 19388738 (Version 1)
Quarter: 2021Q2

REPORT INFORMATION
  Report Type: Spontaneous
  Country: US (occurrence: US)
  Receive Date: 20210608
  Receipt Date: 20210608
  Transmission Date: 20210717
  Serious: Yes (Hospitalization)
  Sender: FDA-Public Use
  Company Number: None

PATIENT
  Sex: Male
  Weight: 14.9 kg

DRUGS (3)
  1. DEXRAZOXANE. [Suspect]
     Active Substance: DEXRAZOXANE
  2. OZOGAMICIN (MYLOTARG) [Concomitant]
  3. CYTARABINE. [Concomitant]
     Active Substance: CYTARABINE

REACTIONS (9)
  - Respiratory failure [None]
  - Blood calcium decreased [None]
  - Cough [None]
  - Acute myeloid leukaemia [None]
  - Acute kidney injury [None]
  - Pneumonia [None]
  - Hypoxia [None]
  - Pulmonary haemorrhage [None]
  - Pyrexia [None]

NARRATIVE: CASE EVENT DATE: 20210531
